FAERS Safety Report 8380869-9 (Version None)
Quarter: 2012Q2

REPORT INFORMATION
  Report Type: 
  Country: None (occurrence: None)
  Receive Date: 20120523
  Receipt Date: 20120516
  Transmission Date: 20120825
  Serious: Yes (Hospitalization, Disabling)
  Sender: FDA-Public Use
  Company Number: US-MERCK-1110USA02439

PATIENT
  Age: 72 Year
  Sex: Female

DRUGS (3)
  1. FOSAMAX [Suspect]
     Indication: OSTEOPOROSIS
     Route: 048
     Dates: start: 20020422, end: 20080130
  2. FOSAMAX [Suspect]
     Route: 048
  3. ALENDRONATE SODIUM [Suspect]
     Indication: OSTEOPOROSIS
     Route: 048
     Dates: start: 20080313, end: 20091124

REACTIONS (12)
  - PYREXIA [None]
  - ADVERSE EVENT [None]
  - SLEEP DISORDER [None]
  - PAIN [None]
  - MUSCLE SPASMS [None]
  - BLOOD CHOLESTEROL INCREASED [None]
  - FEMUR FRACTURE [None]
  - NECK PAIN [None]
  - ASTHMA [None]
  - COUGH [None]
  - LOW TURNOVER OSTEOPATHY [None]
  - BACK PAIN [None]
